FAERS Safety Report 11980108 (Version 1)
Quarter: 2016Q1

REPORT INFORMATION
  Report Type: Report from Study
  Country: DE (occurrence: DE)
  Receive Date: 20160129
  Receipt Date: 20160129
  Transmission Date: 20160526
  Serious: Yes (Death)
  Sender: FDA-Public Use
  Company Number: DE-ABBVIE-16K-062-1547339-00

PATIENT
  Sex: Male

DRUGS (3)
  1. HUMIRA [Suspect]
     Active Substance: ADALIMUMAB
     Indication: RHEUMATOID ARTHRITIS
     Route: 058
     Dates: start: 201306
  2. SASP [Concomitant]
     Active Substance: SULFASALAZINE
     Indication: PRODUCT USED FOR UNKNOWN INDICATION
     Dates: end: 2013
  3. SASP [Concomitant]
     Active Substance: SULFASALAZINE
     Dates: start: 2013

REACTIONS (1)
  - Death [Fatal]

NARRATIVE: CASE EVENT DATE: 20150112
